FAERS Safety Report 4366094-7 (Version None)
Quarter: 2004Q2

REPORT INFORMATION
  Report Type: 
  Country: None (occurrence: None)
  Receive Date: 20040524
  Receipt Date: 20040507
  Transmission Date: 20050107
  Serious: Yes (Hospitalization)
  Sender: FDA-Public Use
  Company Number: 200403652

PATIENT
  Age: 41 Year
  Sex: Male

DRUGS (20)
  1. ALESION (EPINASTINE) [Suspect]
     Dosage: 2 DF QD PO
     Route: 048
  2. STOCRIN [Suspect]
     Indication: HIV INFECTION
     Dosage: 800 MG QD PO
     Route: 048
     Dates: start: 20030501
  3. STOCRIN [Suspect]
     Indication: HIV INFECTION
     Dosage: 600 MG QD PO
     Route: 048
     Dates: start: 20030730
  4. ZERIT [Suspect]
     Indication: HIV INFECTION
     Dosage: 80 MG QD PO
     Route: 048
  5. MEVALOTIN [Suspect]
     Dosage: 20 MG QD PO
     Route: 048
  6. TRAZODONE HCL [Suspect]
     Dosage: 75 MG QD PO
     Route: 048
  7. TRAZODONE HCL [Suspect]
     Dosage: 150 MG QD PO
     Route: 048
  8. EPIVIR [Suspect]
     Indication: HIV INFECTION
     Dosage: 300 MG QD PO
     Route: 048
  9. CODEINE PHOSPHATE AND ACETAMINOPHEN [Suspect]
     Dosage: 60 MG QD PO
     Route: 048
  10. OMEPRAZOLE [Suspect]
     Dosage: 20 MG QD PO
     Route: 048
  11. LOPERAMIDE HYDROCHLORIDE [Suspect]
     Dosage: 3 G QD PO
     Route: 048
  12. FLUNITRAZEPAM [Suspect]
     Dosage: 4 MG QD PO
     Route: 048
  13. PAROXETINE HCL [Suspect]
     Dosage: 50 MG QD PO
     Route: 048
  14. SODIUM ALGINATE [Suspect]
     Dosage: 60 MG QD PO
     Route: 048
  15. ETIZOLAM [Suspect]
     Dosage: 1.5 MG QD PO
     Route: 048
  16. DICLOFENAC [Suspect]
     Dosage: 2 DF QD PO
     Route: 048
  17. VITAMIN A [Suspect]
     Dosage: G
  18. CHLORPROMAZINE HCL [Suspect]
  19. PHENOBARBITAL TAB [Suspect]
  20. PROMETHAZINE HYDROCHLORIDE TAB [Suspect]
     Dosage: 1 DF QD PO
     Route: 048

REACTIONS (2)
  - ADVERSE EVENT [None]
  - INCONTINENCE [None]
